FAERS Safety Report 10050702 (Version 1)
Quarter: 2014Q2

REPORT INFORMATION
  Report Type: Spontaneous
  Country: US (occurrence: US)
  Receive Date: 20140401
  Receipt Date: 20140401
  Transmission Date: 20141212
  Serious: No
  Sender: FDA-Public Use
  Company Number: US-ASTRAZENECA-2013SE69081

PATIENT
  Age: 29 Year
  Sex: Male
  Weight: 72.6 kg

DRUGS (2)
  1. NEXIUM [Suspect]
     Indication: GASTROOESOPHAGEAL REFLUX DISEASE
     Route: 048
     Dates: start: 2012, end: 2012
  2. LEXAPRO [Concomitant]
     Indication: ANXIETY
     Route: 048
     Dates: start: 2010

REACTIONS (4)
  - Anxiety [Unknown]
  - Insomnia [Unknown]
  - Off label use [Unknown]
  - Intentional product misuse [Unknown]
